FAERS Safety Report 5728776-1 (Version None)
Quarter: 2008Q2

REPORT INFORMATION
  Report Type: 
  Country: None (occurrence: None)
  Receive Date: 20080506
  Receipt Date: 20080502
  Transmission Date: 20081010
  Serious: Yes (Other)
  Sender: FDA-Public Use
  Company Number: B0519175A

PATIENT
  Sex: Female

DRUGS (4)
  1. VENTOLIN [Suspect]
     Indication: ASTHMA
     Route: 055
     Dates: start: 20060901
  2. VENTOLIN [Concomitant]
     Route: 055
  3. FLIXOTIDE [Concomitant]
     Indication: ASTHMA
     Route: 065
  4. SEREVENT [Concomitant]
     Indication: ASTHMA
     Route: 065

REACTIONS (2)
  - ASTHMA [None]
  - DYSPNOEA [None]
